FAERS Safety Report 9053279 (Version 1)
Quarter: 2013Q1

REPORT INFORMATION
  Report Type: Spontaneous
  Country: US (occurrence: US)
  Receive Date: 20130207
  Receipt Date: 20130207
  Transmission Date: 20140127
  Serious: Yes (Other)
  Sender: FDA-Public Use
  Company Number: US-TEVA-384597USA

PATIENT
  Age: 81 None
  Sex: Female

DRUGS (3)
  1. PROAIR HFA [Suspect]
     Indication: ASTHMA
     Route: 055
  2. AMANTADINE [Concomitant]
     Indication: PARKINSON^S DISEASE
     Route: 048
  3. ALBUTEROL [Concomitant]
     Indication: ASTHMA

REACTIONS (2)
  - Respiratory distress [Recovered/Resolved]
  - Dyspnoea [Recovered/Resolved]
